FAERS Safety Report 25673500 (Version 1)
Quarter: 2025Q3

REPORT INFORMATION
  Report Type: Spontaneous
  Country: EU (occurrence: EU)
  Receive Date: 20250813
  Receipt Date: 20250813
  Transmission Date: 20251020
  Serious: Yes (Hospitalization, Other)
  Sender: BRISTOL-MYERS SQUIBB COMPANY
  Company Number: None

PATIENT
  Age: 63 Year
  Sex: Female
  Weight: 54 kg

DRUGS (2)
  1. OPDIVO [Suspect]
     Active Substance: NIVOLUMAB
     Indication: Renal cancer metastatic
     Route: 042
     Dates: start: 20220510, end: 20220621
  2. YERVOY [Suspect]
     Active Substance: IPILIMUMAB
     Indication: Renal cancer metastatic
     Route: 042
     Dates: start: 20220510, end: 20220621

REACTIONS (3)
  - Hepatic cytolysis [Recovered/Resolved with Sequelae]
  - Immune-mediated cholestasis [Recovered/Resolved with Sequelae]
  - Immune-mediated hepatitis [Recovered/Resolved with Sequelae]

NARRATIVE: CASE EVENT DATE: 20220621
